FAERS Safety Report 9607665 (Version 2)
Quarter: 2013Q4

REPORT INFORMATION
  Report Type: Spontaneous
  Country: US (occurrence: US)
  Receive Date: 20131009
  Receipt Date: 20131112
  Transmission Date: 20140711
  Serious: Yes (Other)
  Sender: FDA-Public Use
  Company Number: US-JNJFOC-20131001125

PATIENT
  Age: 43 Year
  Sex: Female

DRUGS (12)
  1. ZYRTEC [Concomitant]
     Indication: MULTIPLE ALLERGIES
     Route: 065
  2. FLONASE [Concomitant]
     Indication: MULTIPLE ALLERGIES
     Route: 065
  3. METFORMIN [Concomitant]
     Indication: INSULIN RESISTANCE
     Route: 065
  4. GINGER ROOT [Concomitant]
     Indication: INFLAMMATION
     Route: 065
  5. TURMERIC [Concomitant]
     Indication: INFLAMMATION
     Route: 065
  6. KRILL OIL [Concomitant]
     Indication: INFLAMMATION
     Route: 065
  7. VITAMIN D [Concomitant]
     Indication: CROHN^S DISEASE
     Route: 065
  8. PROBIOTIC [Concomitant]
     Indication: CROHN^S DISEASE
     Route: 065
  9. REMICADE [Suspect]
     Indication: PRODUCT USED FOR UNKNOWN INDICATION
     Dosage: HISTORY OF INFLIXIMAB USE 10 YEARS AGO
     Route: 042
     Dates: end: 2003
  10. REMICADE [Suspect]
     Indication: PRODUCT USED FOR UNKNOWN INDICATION
     Dosage: FIRST INFUSION IN 2013
     Route: 042
     Dates: start: 201306, end: 20131106
  11. COLESTID [Concomitant]
     Indication: CROHN^S DISEASE
     Route: 065
  12. NIASPAN [Concomitant]
     Indication: LIPIDS
     Route: 065

REACTIONS (2)
  - Iritis [Recovering/Resolving]
  - Type IV hypersensitivity reaction [Recovered/Resolved]
